FAERS Safety Report 5235279-X (Version None)
Quarter: 2007Q1

REPORT INFORMATION
  Report Type: 
  Country: None (occurrence: None)
  Receive Date: 20070207
  Receipt Date: 20070207
  Transmission Date: 20070707
  Serious: Yes (Life-Threatening, Hospitalization)
  Sender: FDA-Public Use
  Company Number: None

PATIENT
  Age: 21 Year
  Sex: Male
  Weight: 99.3377 kg

DRUGS (1)
  1. FENTANYL TRANSDERMAL SYSTEM [Suspect]
     Indication: TOOTHACHE
     Dosage: 50 MCG Q3D TOP
     Route: 061
     Dates: start: 20070125, end: 20070129

REACTIONS (1)
  - DEPRESSED LEVEL OF CONSCIOUSNESS [None]
